FAERS Safety Report 10387581 (Version 1)
Quarter: 2014Q3

REPORT INFORMATION
  Report Type: Spontaneous
  Country: US (occurrence: US)
  Receive Date: 20140815
  Receipt Date: 20140815
  Transmission Date: 20150326
  Serious: Yes (Other)
  Sender: FDA-Public Use
  Company Number: US-PFIZER INC-2014227425

PATIENT
  Age: 81 Year
  Sex: Female

DRUGS (2)
  1. RIMARIN [Interacting]
     Active Substance: CHLORPHENIRAMINE MALEATE
     Indication: DEPRESSION
     Dosage: UNK, AT NIGHT
  2. LYRICA [Suspect]
     Active Substance: PREGABALIN
     Indication: NEUROPATHY PERIPHERAL
     Dosage: 50 MG, UNK (AT NIGHT)

REACTIONS (2)
  - Loss of consciousness [Unknown]
  - Drug interaction [Unknown]
